FAERS Safety Report 6165442-5 (Version None)
Quarter: 2009Q2

REPORT INFORMATION
  Report Type: 
  Country: None (occurrence: None)
  Receive Date: 20090423
  Receipt Date: 20090415
  Transmission Date: 20091009
  Serious: Yes (Other)
  Sender: FDA-Public Use
  Company Number: PHHY2009CN14436

PATIENT
  Age: 29 Year
  Sex: Female

DRUGS (5)
  1. CYCLOSPORINE [Suspect]
     Indication: RENAL TRANSPLANT
     Dosage: 180 MG/DAY
     Route: 048
  2. DEXAMETHASONE [Concomitant]
     Indication: RENAL TRANSPLANT
     Dosage: 10 MG/DAY
  3. DEXAMETHASONE [Concomitant]
     Dosage: 15 MG/DAY
  4. AZATHIOPRINE SODIUM [Concomitant]
     Indication: RENAL TRANSPLANT
     Dosage: 50 MG/DAY
  5. AZATHIOPRINE SODIUM [Concomitant]
     Dosage: 70 MG/DAY

REACTIONS (10)
  - BLOOD UREA INCREASED [None]
  - BLOOD URIC ACID INCREASED [None]
  - CAESAREAN SECTION [None]
  - DRUG EXPOSURE DURING PREGNANCY [None]
  - MUSCLE SPASMS [None]
  - OEDEMA [None]
  - PRE-ECLAMPSIA [None]
  - PREGNANCY INDUCED HYPERTENSION [None]
  - PREMATURE LABOUR [None]
  - PROTEIN URINE PRESENT [None]
